FAERS Safety Report 5342800-X (Version None)
Quarter: 2007Q2

REPORT INFORMATION
  Report Type: 
  Country: None (occurrence: None)
  Receive Date: 20070601
  Receipt Date: 20070523
  Transmission Date: 20071010
  Serious: Yes (Hospitalization)
  Sender: FDA-Public Use
  Company Number: FR-PFIZER INC-2007042405

PATIENT
  Age: 73 Year
  Sex: Female

DRUGS (6)
  1. TAHOR [Suspect]
     Route: 048
  2. AMARYL [Suspect]
     Indication: DIABETES MELLITUS
     Route: 048
  3. COTAREG [Suspect]
     Indication: ESSENTIAL HYPERTENSION
     Dosage: TEXT:EVERY DAY
     Route: 048
  4. RIVOTRIL [Concomitant]
     Route: 048
  5. ZYPREXA [Concomitant]
     Dosage: DAILY DOSE:10MG
     Route: 048
  6. LEVOTHYROXINE SODIUM [Concomitant]
     Dosage: DAILY DOSE:150MCG
     Route: 048

REACTIONS (3)
  - BLOOD ALKALINE PHOSPHATASE INCREASED [None]
  - HEPATIC ENZYME INCREASED [None]
  - HYPOGLYCAEMIC COMA [None]
